FAERS Safety Report 4845235-9 (Version None)
Quarter: 2005Q4

REPORT INFORMATION
  Report Type: 
  Country: None (occurrence: None)
  Receive Date: 20051125
  Receipt Date: 20051116
  Transmission Date: 20060501
  Serious: Yes (Death, Hospitalization)
  Sender: FDA-Public Use
  Company Number: HQ1330325MAY2001

PATIENT
  Age: 10 Year
  Sex: Male

DRUGS (2)
  1. ZOSYN [Suspect]
     Indication: ARTHRITIS BACTERIAL
     Dosage: 5-7 DAYS INTRAVENOUS
     Route: 042
     Dates: start: 20010101, end: 20010101
  2. GENTAMICIN SULFATE [Suspect]

REACTIONS (7)
  - BALANCE DISORDER [None]
  - BRAIN OEDEMA [None]
  - DIALYSIS [None]
  - HEPATIC FAILURE [None]
  - INFLUENZA LIKE ILLNESS [None]
  - LABORATORY TEST ABNORMAL [None]
  - RENAL FAILURE ACUTE [None]
